FAERS Safety Report 15540751 (Version 1)
Quarter: 2018Q4

REPORT INFORMATION
  Report Type: Spontaneous
  Country: None (occurrence: JP)
  Receive Date: 20181023
  Receipt Date: 20181023
  Transmission Date: 20190205
  Serious: Yes (Other)
  Sender: FDA-Public Use
  Company Number: JP-INGENUS PHARMACEUTICALS, LLC-INF201810-001016

PATIENT
  Age: 64 Year
  Sex: Female

DRUGS (2)
  1. TERGURIDE [Concomitant]
     Indication: PROLACTIN-PRODUCING PITUITARY TUMOUR
  2. CABERGOLINE. [Suspect]
     Active Substance: CABERGOLINE
     Indication: PROLACTIN-PRODUCING PITUITARY TUMOUR

REACTIONS (5)
  - Headache [Recovered/Resolved]
  - Diplopia [Recovering/Resolving]
  - Vision blurred [Recovered/Resolved]
  - Pituitary haemorrhage [Recovered/Resolved]
  - Eyelid ptosis [Recovering/Resolving]
